FAERS Safety Report 5484906-0 (Version None)
Quarter: 2007Q4

REPORT INFORMATION
  Report Type: 
  Country: None (occurrence: None)
  Receive Date: 20071011
  Receipt Date: 20070929
  Transmission Date: 20080405
  Serious: Yes (Other)
  Sender: FDA-Public Use
  Company Number: 2007PV033509

PATIENT
  Age: 45 Year
  Sex: Female
  Weight: 127.0072 kg

DRUGS (5)
  1. SYMLIN [Suspect]
     Indication: TYPE 2 DIABETES MELLITUS
     Dosage: 120 MCG; TID; SC; 60 MCG; TID; SC
     Route: 058
     Dates: start: 20070401, end: 20070801
  2. SYMLIN [Suspect]
     Indication: TYPE 2 DIABETES MELLITUS
     Dosage: 120 MCG; TID; SC; 60 MCG; TID; SC
     Route: 058
     Dates: start: 20070801
  3. LANTUS [Concomitant]
  4. ACTOS [Concomitant]
  5. GLIPIZIDE [Concomitant]

REACTIONS (3)
  - DIZZINESS [None]
  - HUNGER [None]
  - HYPOGLYCAEMIC UNCONSCIOUSNESS [None]
